FAERS Safety Report 24880249 (Version 5)
Quarter: 2025Q2

REPORT INFORMATION
  Report Type: Spontaneous
  Country: US (occurrence: US)
  Receive Date: 20250123
  Receipt Date: 20250403
  Transmission Date: 20250717
  Serious: Yes (Hospitalization, Other)
  Sender: TAKEDA
  Company Number: US-TAKEDA-2025TUS004486

PATIENT
  Age: 64 Year
  Sex: Female
  Weight: 52 kg

DRUGS (2)
  1. PENTASA [Suspect]
     Active Substance: MESALAMINE
     Indication: Colitis ulcerative
     Dosage: 500 MILLIGRAM, BID
  2. PENTASA [Suspect]
     Active Substance: MESALAMINE
     Dosage: 500 MILLIGRAM, QID

REACTIONS (12)
  - Colon cancer [Unknown]
  - Colitis ulcerative [Recovered/Resolved]
  - Middle insomnia [Unknown]
  - Product container issue [Unknown]
  - Product physical issue [Unknown]
  - Drug ineffective [Unknown]
  - Product availability issue [Unknown]
  - Circumstance or information capable of leading to medication error [Unknown]
  - Illness [Unknown]
  - Rash [Unknown]
  - Flatulence [Unknown]
  - Dyspepsia [Unknown]

NARRATIVE: CASE EVENT DATE: 20190415
